FAERS Safety Report 18152680 (Version 1)
Quarter: 2020Q3

REPORT INFORMATION
  Report Type: Spontaneous
  Country: US (occurrence: US)
  Receive Date: 20200814
  Receipt Date: 20200814
  Transmission Date: 20201103
  Serious: No
  Sender: FDA-Public Use
  Company Number: US-PFIZER INC-2020313618

PATIENT
  Age: 79 Year
  Sex: Female
  Weight: 86.17 kg

DRUGS (2)
  1. LYRICA [Suspect]
     Active Substance: PREGABALIN
     Indication: NEURALGIA
     Dosage: 100 MG, 2X/DAY (ONE CAPSULE BY MOUTH TWICE DAILY)
     Route: 048
     Dates: start: 2018
  2. INSULIN [Concomitant]
     Active Substance: INSULIN NOS
     Dosage: UNK

REACTIONS (4)
  - Arthralgia [Unknown]
  - Body height decreased [Unknown]
  - Pain [Unknown]
  - Neck pain [Unknown]
